FAERS Safety Report 17798851 (Version 1)
Quarter: 2020Q2

REPORT INFORMATION
  Report Type: Spontaneous
  Country: ES (occurrence: ES)
  Receive Date: 20200518
  Receipt Date: 20200518
  Transmission Date: 20200714
  Serious: Yes (Death, Hospitalization)
  Sender: FDA-Public Use
  Company Number: ES-TEVA-2020-ES-1235527

PATIENT
  Age: 72 Year
  Sex: Male

DRUGS (7)
  1. ROACTEMRA 20 MG/ML, CONCENTRADO PARA SOLUCION PARA PERFUSION [Suspect]
     Active Substance: TOCILIZUMAB
     Indication: COVID-19 PNEUMONIA
  2. MEROPENEM (7155A) [Suspect]
     Active Substance: MEROPENEM
     Dosage: 3 GRAM DAILY;
     Route: 042
     Dates: start: 20200404, end: 20200419
  3. ROACTEMRA 20 MG/ML, CONCENTRADO PARA SOLUCION PARA PERFUSION [Suspect]
     Active Substance: TOCILIZUMAB
     Indication: ACUTE RESPIRATORY DISTRESS SYNDROME
     Dosage: 600MG
     Dates: start: 20200327, end: 20200327
  4. METAMIZOL (111A) [Suspect]
     Active Substance: METAMIZOL SODIUM
     Dosage: 6 GRAM DAILY;
     Route: 042
     Dates: start: 20200413, end: 20200416
  5. PIPERACILINA TAZOBACTAM 4G/0,5G [Suspect]
     Active Substance: PIPERACILLIN SODIUM\TAZOBACTAM SODIUM
     Dosage: 1 DOSAGE FORM, C/8H
     Route: 042
     Dates: start: 20200404, end: 20200407
  6. HIDROXICLOROQUINA (2143A) [Suspect]
     Active Substance: HYDROXYCHLOROQUINE
     Indication: COVID-19 PNEUMONIA
     Dosage: 400 MG DAY
     Route: 048
     Dates: start: 20200326, end: 20200402
  7. LINEZOLID (1279A) [Suspect]
     Active Substance: LINEZOLID
     Dosage: 1200 MILLIGRAM DAILY;
     Route: 042
     Dates: start: 20200328, end: 20200416

REACTIONS (3)
  - Hypofibrinogenaemia [Recovered/Resolved]
  - Drug reaction with eosinophilia and systemic symptoms [Not Recovered/Not Resolved]
  - Upper gastrointestinal haemorrhage [Recovering/Resolving]

NARRATIVE: CASE EVENT DATE: 20200402
